FAERS Safety Report 21720235 (Version 1)
Quarter: 2022Q4

REPORT INFORMATION
  Report Type: Report from Study
  Country: CA (occurrence: CA)
  Receive Date: 20221213
  Receipt Date: 20221213
  Transmission Date: 20230113
  Serious: Yes (Hospitalization, Other)
  Sender: FDA-Public Use
  Company Number: CA-BRISTOL-MYERS SQUIBB COMPANY-2022-129312

PATIENT
  Age: 73 Year
  Sex: Male

DRUGS (7)
  1. OPDIVO [Suspect]
     Active Substance: NIVOLUMAB
     Indication: Oesophageal carcinoma
     Route: 042
     Dates: start: 20221013
  2. OPDIVO [Suspect]
     Active Substance: NIVOLUMAB
     Route: 042
     Dates: start: 20221013
  3. GABAPENTIN [Concomitant]
     Active Substance: GABAPENTIN
  4. TYLENOL [Concomitant]
     Active Substance: ACETAMINOPHEN
  5. HYDROMORPHONE [Concomitant]
     Active Substance: HYDROMORPHONE
  6. LEVOTHYROXINE [Concomitant]
     Active Substance: LEVOTHYROXINE
  7. ATORVASTATIN [Concomitant]
     Active Substance: ATORVASTATIN

REACTIONS (21)
  - Fatigue [Unknown]
  - Nausea [Unknown]
  - Somnolence [Unknown]
  - Appetite disorder [Unknown]
  - General physical health deterioration [Unknown]
  - Dyspnoea [Unknown]
  - Ear infection [Unknown]
  - Pharyngitis [Unknown]
  - Cough [Unknown]
  - Blood pressure diastolic decreased [Unknown]
  - Condition aggravated [Unknown]
  - Depression [Unknown]
  - Anxiety [Unknown]
  - Pyrexia [Unknown]
  - Chills [Unknown]
  - Malaise [Unknown]
  - Upper respiratory tract infection [Recovering/Resolving]
  - Pyrexia [Unknown]
  - Viral infection [Unknown]
  - Pneumonia [Unknown]
  - Thrombosis [Unknown]
